FAERS Safety Report 14438215 (Version 3)
Quarter: 2018Q1

REPORT INFORMATION
  Report Type: Spontaneous
  Country: US (occurrence: US)
  Receive Date: 20180125
  Receipt Date: 20180201
  Transmission Date: 20180509
  Serious: No
  Sender: FDA-Public Use
  Company Number: US-PFIZER INC-2018027820

PATIENT
  Age: 40 Year
  Sex: Female
  Weight: 111 kg

DRUGS (1)
  1. GENTAMICIN SULFATE. [Suspect]
     Active Substance: GENTAMICIN SULFATE
     Dosage: 80MG/2ML

REACTIONS (2)
  - Product packaging issue [Unknown]
  - Foreign body [Unknown]

NARRATIVE: CASE EVENT DATE: 20180118
